FAERS Safety Report 9636453 (Version 2)
Quarter: 2013Q4

REPORT INFORMATION
  Report Type: Spontaneous
  Country: CA (occurrence: CA)
  Receive Date: 20131021
  Receipt Date: 20131021
  Transmission Date: 20140711
  Serious: Yes (Hospitalization, Other)
  Sender: FDA-Public Use
  Company Number: CA-009507513-1308CAN007619

PATIENT
  Age: 61 Year
  Sex: Female

DRUGS (2)
  1. VICTRELIS TRIPLE [Suspect]
     Indication: HEPATITIS C
     Dosage: 120 MICROGRAM, UNK
     Route: 065
     Dates: start: 20130207, end: 20131009
  2. VICTRELIS TRIPLE [Suspect]
     Dosage: 200 MG, UNK
     Route: 065
     Dates: start: 20130207, end: 20131009

REACTIONS (8)
  - Influenza like illness [Not Recovered/Not Resolved]
  - Amnesia [Not Recovered/Not Resolved]
  - Suicidal ideation [Unknown]
  - Bone pain [Not Recovered/Not Resolved]
  - Nausea [Not Recovered/Not Resolved]
  - Haemoglobin decreased [Not Recovered/Not Resolved]
  - Condition aggravated [Not Recovered/Not Resolved]
  - Myocardial infarction [Unknown]
